FAERS Safety Report 7915708-0 (Version None)
Quarter: 2011Q4

REPORT INFORMATION
  Report Type: 
  Country: None (occurrence: None)
  Receive Date: 20111115
  Receipt Date: 20111108
  Transmission Date: 20120403
  Serious: Yes (Other)
  Sender: FDA-Public Use
  Company Number: GB-GLAXOSMITHKLINE-B0749086A

PATIENT
  Sex: Female

DRUGS (1)
  1. MALARONE [Suspect]
     Indication: MALARIA PROPHYLAXIS
     Dosage: 1TAB PER DAY
     Route: 048
     Dates: start: 20110829

REACTIONS (6)
  - DIARRHOEA HAEMORRHAGIC [None]
  - INSOMNIA [None]
  - DISCOMFORT [None]
  - FLATULENCE [None]
  - DYSPEPSIA [None]
  - DIARRHOEA [None]
